FAERS Safety Report 9299024 (Version 1)
Quarter: 2013Q2

REPORT INFORMATION
  Report Type: Spontaneous
  Country: IT (occurrence: IT)
  Receive Date: 20130520
  Receipt Date: 20130520
  Transmission Date: 20140414
  Serious: Yes (Hospitalization)
  Sender: FDA-Public Use
  Company Number: IT-BRISTOL-MYERS SQUIBB COMPANY-18906206

PATIENT
  Age: 73 Year
  Sex: Male

DRUGS (3)
  1. ERBITUX SOLN FOR INF [Suspect]
     Indication: LARYNGEAL CANCER STAGE I
     Dosage: INTER ON 18JAN13
     Route: 042
     Dates: start: 20130118
  2. CISPLATIN FOR INJ [Suspect]
     Indication: LARYNGEAL CANCER STAGE I
     Route: 042
     Dates: start: 20130118, end: 20130118
  3. CAPECITABINE [Suspect]
     Indication: LARYNGEAL CANCER STAGE I
     Route: 042
     Dates: start: 20130118

REACTIONS (2)
  - Anaemia [Recovering/Resolving]
  - Haematuria [Recovering/Resolving]
